FAERS Safety Report 9658099 (Version 1)
Quarter: 2013Q4

REPORT INFORMATION
  Report Type: Spontaneous
  Country: US (occurrence: US)
  Receive Date: 20131030
  Receipt Date: 20131030
  Transmission Date: 20140711
  Serious: No
  Sender: FDA-Public Use
  Company Number: US-PURDUE-USA-2012-0084600

PATIENT
  Age: 89 Year
  Sex: Female

DRUGS (1)
  1. OXYCODONE HCL IR CAPSULES [Suspect]
     Indication: PRODUCT USED FOR UNKNOWN INDICATION
     Dosage: 4 REG STRENGTH

REACTIONS (1)
  - Drug intolerance [Unknown]
